FAERS Safety Report 5787679-7 (Version None)
Quarter: 2008Q2

REPORT INFORMATION
  Report Type: 
  Country: None (occurrence: None)
  Receive Date: 20080624
  Receipt Date: 20080624
  Transmission Date: 20081010
  Serious: Yes (Life-Threatening, Hospitalization)
  Sender: FDA-Public Use
  Company Number: None

PATIENT
  Sex: Female
  Weight: 63 kg

DRUGS (2)
  1. ZOMETA [Suspect]
     Indication: GLIOBLASTOMA MULTIFORME
     Dosage: 4MG Q12 WEEKS IV
     Route: 042
     Dates: start: 20080130
  2. ZOMETA [Suspect]
     Indication: GLIOBLASTOMA MULTIFORME
     Dosage: 4MG Q12 WEEKS IV
     Route: 042
     Dates: start: 20080424

REACTIONS (5)
  - DEHYDRATION [None]
  - DIARRHOEA [None]
  - MENINGITIS [None]
  - PNEUMONIA [None]
  - SEPSIS [None]
